FAERS Safety Report 25379015 (Version 1)
Quarter: 2025Q2

REPORT INFORMATION
  Report Type: Report from Study
  Country: DE (occurrence: DE)
  Receive Date: 20250530
  Receipt Date: 20250530
  Transmission Date: 20250717
  Serious: Yes (Hospitalization)
  Sender: TEVA
  Company Number: DE-BRISTOL-MYERS SQUIBB COMPANY-2024-130377

PATIENT
  Age: 61 Year
  Sex: Female

DRUGS (3)
  1. METHOTREXATE [Suspect]
     Active Substance: METHOTREXATE
     Indication: Product used for unknown indication
     Route: 065
  2. FILGOTINIB [Suspect]
     Active Substance: FILGOTINIB
     Indication: Product used for unknown indication
     Route: 065
     Dates: start: 20240131
  3. ORENCIA [Suspect]
     Active Substance: ABATACEPT
     Indication: Product used for unknown indication
     Dosage: 750MG/EVERY 4 WEEKS SINCE 05.02.2024
     Route: 042
     Dates: start: 20240205

REACTIONS (7)
  - Osteoarthritis [Unknown]
  - Tendon rupture [Unknown]
  - Bursitis [Unknown]
  - Tenosynovitis [Unknown]
  - Tendon disorder [Unknown]
  - Cough [Unknown]
  - Synovitis [Unknown]

NARRATIVE: CASE EVENT DATE: 20240401
